FAERS Safety Report 18383233 (Version 1)
Quarter: 2020Q4

REPORT INFORMATION
  Report Type: Spontaneous
  Country: FR (occurrence: FR)
  Receive Date: 20201014
  Receipt Date: 20201014
  Transmission Date: 20210114
  Serious: Yes (Hospitalization)
  Sender: FDA-Public Use
  Company Number: FR-ASTRAZENECA-2020SF29554

PATIENT
  Age: 69 Year
  Sex: Male
  Weight: 106 kg

DRUGS (4)
  1. ROSUVASTATINE [Suspect]
     Active Substance: ROSUVASTATIN
     Indication: DYSLIPIDAEMIA
     Route: 048
     Dates: end: 20200418
  2. SKENAN [Suspect]
     Active Substance: MORPHINE SULFATE
     Indication: POST HERPETIC NEURALGIA
     Route: 048
     Dates: start: 202003, end: 20200418
  3. LYRICA [Suspect]
     Active Substance: PREGABALIN
     Indication: POST HERPETIC NEURALGIA
     Route: 048
     Dates: start: 202003, end: 20200418
  4. GABAPENTINE [Suspect]
     Active Substance: GABAPENTIN
     Indication: POST HERPETIC NEURALGIA
     Route: 048
     Dates: start: 202003, end: 20200418

REACTIONS (3)
  - Hyperkalaemia [Recovered/Resolved]
  - Rhabdomyolysis [Recovered/Resolved]
  - Acute kidney injury [Recovered/Resolved]

NARRATIVE: CASE EVENT DATE: 20200418
